FAERS Safety Report 14920773 (Version 3)
Quarter: 2019Q1

REPORT INFORMATION
  Report Type: Spontaneous
  Country: CA (occurrence: CA)
  Receive Date: 20180521
  Receipt Date: 20190107
  Transmission Date: 20190417
  Serious: Yes (Hospitalization)
  Sender: FDA-Public Use
  Company Number: CA-PFIZER INC-2017360339

PATIENT
  Age: 71 Year
  Sex: Male

DRUGS (2)
  1. XYNTHA [Suspect]
     Active Substance: ANTIHEMOPHILIC FACTOR, HUMAN RECOMBINANT RESIDUES 743-1636 DELETED
     Indication: FACTOR VIII DEFICIENCY
     Dosage: 2000 IU, CYCLIC THREE TIMES WEEKLY
     Route: 042
     Dates: start: 20151001
  2. XYNTHA [Suspect]
     Active Substance: ANTIHEMOPHILIC FACTOR, HUMAN RECOMBINANT RESIDUES 743-1636 DELETED
     Dosage: 2000 IU, UNK
     Route: 042
     Dates: start: 20180425

REACTIONS (4)
  - Malaise [Not Recovered/Not Resolved]
  - Lower limb fracture [Unknown]
  - Wound [Recovered/Resolved]
  - Vein disorder [Unknown]

NARRATIVE: CASE EVENT DATE: 20170904
